FAERS Safety Report 8804869 (Version 2)
Quarter: 2015Q1

REPORT INFORMATION
  Report Type: Report from Study
  Country: US (occurrence: US)
  Receive Date: 20120924
  Receipt Date: 20150308
  Transmission Date: 20150721
  Serious: Yes (Death)
  Sender: FDA-Public Use
  Company Number: US-ROCHE-1102384

PATIENT
  Sex: Female

DRUGS (4)
  1. AVASTIN [Suspect]
     Active Substance: BEVACIZUMAB
     Indication: RENAL CANCER
     Dosage: INFUSION DATES: 26/JAN/2005, 09/FEB/2005, 22/FEB/2005, 23/MAR/2005, 06/APR/2005, 20/APR/2005 AND 20/
     Route: 042
     Dates: start: 20050114
  2. ZOMETA [Concomitant]
     Active Substance: ZOLEDRONIC ACID
  3. TARCEVA [Suspect]
     Active Substance: ERLOTINIB HYDROCHLORIDE
     Indication: MALIGNANT URINARY TRACT NEOPLASM
  4. TARCEVA [Suspect]
     Active Substance: ERLOTINIB HYDROCHLORIDE
     Indication: RENAL CANCER
     Route: 065

REACTIONS (2)
  - Off label use [Unknown]
  - Death [Fatal]
